FAERS Safety Report 12615853 (Version 2)
Quarter: 2016Q3

REPORT INFORMATION
  Report Type: Report from Study
  Country: DE (occurrence: DE)
  Receive Date: 20160802
  Receipt Date: 20160808
  Transmission Date: 20161109
  Serious: Yes (Hospitalization)
  Sender: FDA-Public Use
  Company Number: DE-ABBVIE-16K-062-1689631-00

PATIENT
  Age: 76 Year
  Sex: Male

DRUGS (12)
  1. SPIRONOLACTON [Concomitant]
     Active Substance: SPIRONOLACTONE
     Indication: PRODUCT USED FOR UNKNOWN INDICATION
     Route: 065
  2. NACOM [Concomitant]
     Active Substance: CARBIDOPA\LEVODOPA
     Indication: PRODUCT USED FOR UNKNOWN INDICATION
  3. DUODOPA [Suspect]
     Active Substance: CARBIDOPA\LEVODOPA
     Dosage: CRD FROM 6:30 A.M. TO 9 P.M.
     Route: 050
  4. SIMVASTATIN. [Concomitant]
     Active Substance: SIMVASTATIN
     Indication: PRODUCT USED FOR UNKNOWN INDICATION
     Route: 065
  5. L-DOPA RETARD [Concomitant]
     Indication: PRODUCT USED FOR UNKNOWN INDICATION
     Route: 065
     Dates: end: 201607
  6. EUNERPAN [Concomitant]
     Active Substance: MELPERONE HYDROCHLORIDE
     Indication: RESTLESSNESS
     Dosage: UP TO 3 X 25 MG; AS REQUIRED
  7. SAROTEN [Suspect]
     Active Substance: AMITRIPTYLINE
     Indication: PRODUCT USED FOR UNKNOWN INDICATION
     Route: 065
  8. L-DOPA RETARD [Concomitant]
     Dosage: HALF OF PRIOR DOSE
     Route: 065
     Dates: start: 201607
  9. METOPROLOL. [Concomitant]
     Active Substance: METOPROLOL
     Indication: PRODUCT USED FOR UNKNOWN INDICATION
     Route: 065
  10. ACETYLSALICYLIC ACID [Concomitant]
     Active Substance: ASPIRIN
     Indication: PRODUCT USED FOR UNKNOWN INDICATION
  11. DUODOPA [Suspect]
     Active Substance: CARBIDOPA\LEVODOPA
     Indication: PARKINSON^S DISEASE
     Dosage: MD 8ML, CRD 3.2ML/H, ED: UNKNOWN
     Route: 050
     Dates: start: 20150211, end: 201607
  12. DUODOPA [Suspect]
     Active Substance: CARBIDOPA\LEVODOPA
     Dosage: MD 8ML, CRD 3.2ML/H, ED 0ML
     Route: 050
     Dates: start: 201607

REACTIONS (32)
  - Intentional product misuse [Not Recovered/Not Resolved]
  - Akinesia [Unknown]
  - Depressed mood [Unknown]
  - Sinus node dysfunction [Unknown]
  - Hyperkinesia [Not Recovered/Not Resolved]
  - Syncope [Unknown]
  - Arrhythmia supraventricular [Recovered/Resolved]
  - Dysarthria [Unknown]
  - Dysphonia [Unknown]
  - Cognitive disorder [Unknown]
  - Pharyngeal haemorrhage [Unknown]
  - Abnormal behaviour [Unknown]
  - Paresis [Unknown]
  - Tremor [Unknown]
  - Sleep disorder [Recovering/Resolving]
  - Disorientation [Recovering/Resolving]
  - Salivary hypersecretion [Recovering/Resolving]
  - Daydreaming [Unknown]
  - Aggression [Recovering/Resolving]
  - Psychotic disorder [Not Recovered/Not Resolved]
  - Hospitalisation [Unknown]
  - Lung infiltration [Recovering/Resolving]
  - Muscle rigidity [Unknown]
  - Poor quality sleep [Unknown]
  - Dysphagia [Unknown]
  - Pneumonia aspiration [Recovering/Resolving]
  - Atrial fibrillation [Recovered/Resolved]
  - Oropharyngeal pain [Unknown]
  - Gait disturbance [Unknown]
  - Breath sounds abnormal [Unknown]
  - Diarrhoea [Recovered/Resolved]
  - General physical health deterioration [Not Recovered/Not Resolved]

NARRATIVE: CASE EVENT DATE: 2016
